FAERS Safety Report 11030100 (Version 1)
Quarter: 2015Q2

REPORT INFORMATION
  Report Type: Spontaneous
  Country: GB (occurrence: None)
  Receive Date: 20150413
  Receipt Date: 20150413
  Transmission Date: 20150821
  Serious: Yes (Disabling)
  Sender: FDA-Public Use
  Company Number: None

PATIENT
  Age: 53 Year
  Sex: Male
  Weight: 83 kg

DRUGS (1)
  1. STAVUDINE. [Suspect]
     Active Substance: STAVUDINE
     Dosage: 1 DAILY
     Route: 048

REACTIONS (1)
  - Sensory disturbance [None]

NARRATIVE: CASE EVENT DATE: 20080410
